FAERS Safety Report 10196916 (Version 1)
Quarter: 2014Q2

REPORT INFORMATION
  Report Type: Report from Study
  Country: BR (occurrence: BR)
  Receive Date: 20140527
  Receipt Date: 20140527
  Transmission Date: 20141212
  Serious: Yes (Hospitalization, Other)
  Sender: FDA-Public Use
  Company Number: BR-SA-2014SA063776

PATIENT
  Age: 9 Year
  Sex: Female

DRUGS (1)
  1. MYOZYME [Suspect]
     Indication: GLYCOGEN STORAGE DISEASE TYPE II
     Route: 042
     Dates: start: 201303

REACTIONS (8)
  - Cellulitis [Unknown]
  - Erythema [Unknown]
  - Swelling [Unknown]
  - Pyrexia [Unknown]
  - Urinary tract infection [Unknown]
  - Gastrostomy [Unknown]
  - Neurogenic bladder [Unknown]
  - Anaemia [Unknown]
